FAERS Safety Report 13739196 (Version 1)
Quarter: 2017Q3

REPORT INFORMATION
  Report Type: Report from Study
  Country: US (occurrence: US)
  Receive Date: 20170710
  Receipt Date: 20170710
  Transmission Date: 20171127
  Serious: No
  Sender: FDA-Public Use
  Company Number: US-SAOL THERAPEUTICS-2017SAO00252

PATIENT
  Age: 58 Year

DRUGS (12)
  1. COMPOUNDED BACLOFEN [Suspect]
     Active Substance: BACLOFEN
     Dosage: 68.11 ?G, \DAY
     Route: 037
     Dates: start: 20161020
  2. BUPIVACAINE. [Suspect]
     Active Substance: BUPIVACAINE
     Dosage: 10.243 MG, \DAY
     Route: 037
     Dates: start: 20160721, end: 20161020
  3. BUPIVACAINE. [Suspect]
     Active Substance: BUPIVACAINE
     Dosage: 10.105 MG, \DAY
     Route: 037
     Dates: start: 20161020
  4. DILAUDID [Suspect]
     Active Substance: HYDROMORPHONE HYDROCHLORIDE
     Dosage: 567.6 ?G, \DAY
     Route: 037
     Dates: start: 20161020
  5. BUPIVACAINE. [Suspect]
     Active Substance: BUPIVACAINE
     Dosage: 7.93 MG, \DAY
     Route: 037
     Dates: start: 20160721, end: 20161020
  6. COMPOUNDED BACLOFEN [Suspect]
     Active Substance: BACLOFEN
     Dosage: 51.21 ?G, \DAY
     Route: 037
     Dates: start: 20160721, end: 20161020
  7. COMPOUNDED BACLOFEN [Suspect]
     Active Substance: BACLOFEN
     Dosage: 50.53 ?G, \DAY
     Route: 037
     Dates: start: 20161020
  8. DILAUDID [Suspect]
     Active Substance: HYDROMORPHONE HYDROCHLORIDE
     Dosage: 421.1 ?G, \DAY
     Route: 037
     Dates: start: 20161020
  9. DILAUDID [Suspect]
     Active Substance: HYDROMORPHONE HYDROCHLORIDE
     Dosage: 330.4 ?G, \DAY
     Route: 037
     Dates: start: 20160721, end: 20161020
  10. COMPOUNDED BACLOFEN [Suspect]
     Active Substance: BACLOFEN
     Dosage: 39.65 ?G, \DAY
     Route: 037
     Dates: start: 20160721, end: 20161020
  11. BUPIVACAINE. [Suspect]
     Active Substance: BUPIVACAINE
     Dosage: 13.622 MG, \DAY
     Route: 037
     Dates: start: 20161020
  12. DILAUDID [Suspect]
     Active Substance: HYDROMORPHONE HYDROCHLORIDE
     Dosage: 426.8 ?G, \DAY
     Route: 037
     Dates: start: 20160721, end: 20161020

REACTIONS (1)
  - Medical device site pain [Recovered/Resolved]

NARRATIVE: CASE EVENT DATE: 20170112
